FAERS Safety Report 18494627 (Version 1)
Quarter: 2020Q4

REPORT INFORMATION
  Report Type: Report from Study
  Country: None (occurrence: US)
  Receive Date: 20201112
  Receipt Date: 20201112
  Transmission Date: 20210114
  Serious: Yes (Other)
  Sender: FDA-Public Use
  Company Number: US-BAXALTA-2016BLT005825AA

PATIENT
  Age: 62 Year
  Sex: Female

DRUGS (1)
  1. HUMAN NORMAL IMMUNOGLOBULIN; LIQUID [Suspect]
     Active Substance: HUMAN IMMUNOGLOBULIN G
     Indication: PRIMARY IMMUNODEFICIENCY SYNDROME
     Route: 058

REACTIONS (5)
  - Illness [Not Recovered/Not Resolved]
  - Malaise [Unknown]
  - Mental disorder [Unknown]
  - Lyme disease [Unknown]
  - Headache [Unknown]

NARRATIVE: CASE EVENT DATE: 20200411
